FAERS Safety Report 10422826 (Version 2)
Quarter: 2015Q1

REPORT INFORMATION
  Report Type: Report from Study
  Country: JP (occurrence: JP)
  Receive Date: 20140902
  Receipt Date: 20150204
  Transmission Date: 20150720
  Serious: Yes (Hospitalization)
  Sender: FDA-Public Use
  Company Number: JP-AMGEN-JPNCT2014066132

PATIENT
  Age: 74 Year
  Sex: Male
  Weight: 65 kg

DRUGS (12)
  1. VELCADE [Concomitant]
     Active Substance: BORTEZOMIB
     Dosage: UNK
     Route: 065
     Dates: start: 20140122, end: 20140319
  2. DENOSUMAB [Suspect]
     Active Substance: DENOSUMAB
     Indication: PLASMA CELL MYELOMA
     Dosage: 120 MG, UNK
     Route: 058
     Dates: start: 20131211
  3. ZOVIRAX [Concomitant]
     Active Substance: ACYCLOVIR
     Dosage: 200 MG, QD
     Route: 048
     Dates: start: 20130626
  4. FENTANYL. [Concomitant]
     Active Substance: FENTANYL
     Dosage: 2.54 MG, QD
     Route: 050
  5. DEXAMETHASONE. [Concomitant]
     Active Substance: DEXAMETHASONE
     Dosage: UNK
     Route: 065
     Dates: start: 20140603
  6. ALKERAN [Concomitant]
     Active Substance: MELPHALAN
     Dosage: UNK
     Route: 065
     Dates: start: 20140122, end: 20140319
  7. TAKEPRON [Concomitant]
     Active Substance: LANSOPRAZOLE
     Dosage: 15 MG, QD
     Route: 048
  8. MAGLAX [Concomitant]
     Active Substance: MAGNESIUM OXIDE
     Dosage: 750 MG, QD
     Route: 048
  9. PREDONINE [Concomitant]
     Active Substance: PREDNISOLONE\PREDNISOLONE ACETATE\PREDNISOLONE SODIUM SUCCINATE
     Dosage: UNK
     Route: 065
     Dates: start: 20140122, end: 20140319
  10. TRAMAL [Concomitant]
     Active Substance: TRAMADOL
     Dosage: 100 MG, QD
     Route: 048
     Dates: start: 20140122
  11. MICARDIS [Concomitant]
     Active Substance: TELMISARTAN
     Dosage: 40 MG, QD
     Route: 048
  12. LYRICA [Concomitant]
     Active Substance: PREGABALIN
     Dosage: 300-600 MG, QD
     Route: 048
     Dates: start: 20130521

REACTIONS (5)
  - Hypercalcaemia [Recovered/Resolved]
  - Blood creatinine increased [Recovered/Resolved]
  - Dehydration [Recovered/Resolved]
  - Influenza [Recovered/Resolved]
  - Hypocalcaemia [Recovered/Resolved]

NARRATIVE: CASE EVENT DATE: 20131225
